FAERS Safety Report 6430998-1 (Version None)
Quarter: 2009Q4

REPORT INFORMATION
  Report Type: 
  Country: None (occurrence: None)
  Receive Date: 20091106
  Receipt Date: 20091028
  Transmission Date: 20100525
  Serious: Yes (Life-Threatening)
  Sender: FDA-Public Use
  Company Number: JP-JNJFOC-20091006313

PATIENT
  Sex: Female
  Weight: 74 kg

DRUGS (11)
  1. REMICADE [Suspect]
     Route: 042
     Dates: end: 20081128
  2. REMICADE [Suspect]
     Indication: RHEUMATOID ARTHRITIS
     Dosage: 9 INFUSIONS ON UNSPECIFIED DATES
     Route: 042
     Dates: end: 20081128
  3. LOXONIN [Concomitant]
     Route: 048
  4. MUCOSTA [Concomitant]
     Route: 048
  5. METOLATE [Concomitant]
     Route: 048
  6. FOLIAMIN [Concomitant]
     Dosage: DOSE: 1T
     Route: 048
  7. LANSOPRAZOLE [Concomitant]
     Route: 048
  8. ISCOTIN [Concomitant]
     Route: 048
  9. ALLEGRA [Concomitant]
     Route: 048
  10. VOLTAREN [Concomitant]
     Route: 054
  11. MOHRUS [Concomitant]

REACTIONS (2)
  - CARDIAC FAILURE [None]
  - HEPATIC NEOPLASM MALIGNANT [None]
